FAERS Safety Report 22601671 (Version 2)
Quarter: 2023Q2

REPORT INFORMATION
  Report Type: Spontaneous
  Country: JP (occurrence: JP)
  Receive Date: 20230614
  Receipt Date: 20230623
  Transmission Date: 20230721
  Serious: Yes (Other)
  Sender: FDA-Public Use
  Company Number: JP-ONO-2023JP015058

PATIENT
  Age: 10 Decade
  Sex: Female

DRUGS (1)
  1. RIVASTIGMINE [Suspect]
     Active Substance: RIVASTIGMINE
     Indication: Dementia Alzheimer^s type
     Dosage: UNK
     Route: 062

REACTIONS (2)
  - Dementia Alzheimer^s type [Unknown]
  - Product prescribing error [Unknown]
